FAERS Safety Report 7852054-8 (Version None)
Quarter: 2011Q4

REPORT INFORMATION
  Report Type: 
  Country: None (occurrence: None)
  Receive Date: 20111026
  Receipt Date: 20111019
  Transmission Date: 20120403
  Serious: Yes (Hospitalization)
  Sender: FDA-Public Use
  Company Number: US-B.I. PHARMACEUTICALS,INC./RIDGEFIELD-2011-BP-17917BP

PATIENT
  Sex: Male

DRUGS (5)
  1. PRADAXA [Suspect]
     Indication: ANTICOAGULANT THERAPY
     Dosage: 300 MG
     Route: 048
     Dates: start: 20110306, end: 20110711
  2. CLONIDINE [Concomitant]
     Indication: HYPERTENSION
  3. PRADAXA [Suspect]
     Indication: CEREBROVASCULAR ACCIDENT PROPHYLAXIS
     Dosage: 150 MG
     Route: 048
     Dates: start: 20110711, end: 20110715
  4. PRADAXA [Suspect]
     Indication: ATRIAL FIBRILLATION
  5. LISINOPRIL [Concomitant]
     Indication: HYPERTENSION
     Dates: end: 20110711

REACTIONS (6)
  - HYPERSENSITIVITY [None]
  - RENAL IMPAIRMENT [None]
  - RED BLOOD CELL COUNT DECREASED [None]
  - GLOMERULAR FILTRATION RATE DECREASED [None]
  - RENAL FAILURE ACUTE [None]
  - BLOOD CREATININE INCREASED [None]
